FAERS Safety Report 15702470 (Version 1)
Quarter: 2018Q4

REPORT INFORMATION
  Report Type: Spontaneous
  Country: FR (occurrence: FR)
  Receive Date: 20181210
  Receipt Date: 20181210
  Transmission Date: 20190205
  Serious: Yes (Hospitalization)
  Sender: FDA-Public Use
  Company Number: FR-ACCORD-095345

PATIENT
  Age: 49 Year
  Sex: Male
  Weight: 87 kg

DRUGS (7)
  1. ETOPOSIDE. [Suspect]
     Active Substance: ETOPOSIDE
     Indication: SEMINOMA
     Route: 042
     Dates: start: 20170925, end: 20171110
  2. PREDNISOLONE. [Concomitant]
     Active Substance: PREDNISOLONE
     Route: 048
     Dates: start: 201709
  3. BLEOMYCIN [Suspect]
     Active Substance: BLEOMYCIN SULFATE
     Indication: SEMINOMA
     Dosage: 15 MG POWDER FOR SOLUTION FOR INJECTION
     Route: 042
     Dates: start: 20170926, end: 20171107
  4. CORDARONE [Suspect]
     Active Substance: AMIODARONE HYDROCHLORIDE
     Indication: ATRIAL FIBRILLATION
     Route: 048
     Dates: start: 20171019, end: 20171019
  5. EMEND [Concomitant]
     Active Substance: APREPITANT
     Route: 048
     Dates: start: 201709
  6. ONDANSETRON [Concomitant]
     Active Substance: ONDANSETRON
     Route: 048
     Dates: start: 201709
  7. CISPLATIN. [Concomitant]
     Active Substance: CISPLATIN
     Indication: SEMINOMA
     Route: 042
     Dates: start: 20170925, end: 20171110

REACTIONS (1)
  - Lung disorder [Recovered/Resolved]

NARRATIVE: CASE EVENT DATE: 20171110
